FAERS Safety Report 23878151 (Version 1)
Quarter: 2024Q2

REPORT INFORMATION
  Report Type: Spontaneous
  Country: CA (occurrence: CA)
  Receive Date: 20240521
  Receipt Date: 20240521
  Transmission Date: 20240715
  Serious: Yes (Other)
  Sender: FDA-Public Use
  Company Number: CA-BAYER-2024A069531

PATIENT
  Sex: Female

DRUGS (2)
  1. CIPROFLOXACIN [Suspect]
     Active Substance: CIPROFLOXACIN
     Indication: Cystitis
     Dosage: UNK
     Dates: start: 2014
  2. CIPROFLOXACIN [Suspect]
     Active Substance: CIPROFLOXACIN
     Indication: Urinary bladder suspension
     Dosage: UNK
     Dates: start: 2019

REACTIONS (4)
  - Ileus paralytic [None]
  - Ileus paralytic [None]
  - Tendon rupture [None]
  - Contraindicated product administered [None]

NARRATIVE: CASE EVENT DATE: 20140101
